FAERS Safety Report 6236963-1 (Version None)
Quarter: 2009Q2

REPORT INFORMATION
  Report Type: 
  Country: None (occurrence: None)
  Receive Date: 20090619
  Receipt Date: 20090330
  Transmission Date: 20091009
  Serious: No
  Sender: FDA-Public Use
  Company Number: US-ASTRAZENECA-2009UW05618

PATIENT
  Age: 68 Year
  Sex: Female
  Weight: 74.8 kg

DRUGS (13)
  1. SYMBICORT [Suspect]
     Indication: CHRONIC OBSTRUCTIVE PULMONARY DISEASE
     Dosage: 160 UG
     Route: 055
     Dates: start: 20090107, end: 20090114
  2. COMBIVENT [Concomitant]
     Indication: CHRONIC OBSTRUCTIVE PULMONARY DISEASE
     Route: 055
  3. IPRATROPIUM BROMIDE WITH ALBUTEROL [Concomitant]
     Indication: CHRONIC OBSTRUCTIVE PULMONARY DISEASE
     Route: 055
  4. METFORMIN HCL [Concomitant]
     Indication: GLUCOSE TOLERANCE IMPAIRED
  5. AVAPRO [Concomitant]
     Indication: HYPERTENSION
     Route: 048
  6. NIACIN [Concomitant]
     Indication: HYPERCHOLESTEROLAEMIA
     Route: 048
  7. LEVOTHYROXINE SODIUM [Concomitant]
     Indication: THYROID DISORDER
     Route: 048
  8. MACROBID [Concomitant]
     Indication: UTERINE DISORDER
     Route: 054
  9. PREDNISONE [Concomitant]
     Indication: CHRONIC OBSTRUCTIVE PULMONARY DISEASE
     Route: 048
  10. VITAMIN D [Concomitant]
     Dosage: 50000 U
     Route: 048
  11. VITAMIN B COMPLEX CAP [Concomitant]
     Route: 048
  12. GARLIC [Concomitant]
     Route: 048
  13. ALPRAZALINE [Concomitant]
     Indication: SLEEP DISORDER
     Route: 048

REACTIONS (1)
  - DYSPNOEA [None]
